FAERS Safety Report 23256781 (Version 1)
Quarter: 2023Q4

REPORT INFORMATION
  Report Type: Report from Study
  Country: ES (occurrence: ES)
  Receive Date: 20231204
  Receipt Date: 20231204
  Transmission Date: 20240109
  Serious: Yes (Other)
  Sender: FDA-Public Use
  Company Number: ES-JNJFOC-20231172196

PATIENT

DRUGS (1)
  1. IMBRUVICA [Suspect]
     Active Substance: IBRUTINIB
     Indication: Chronic lymphocytic leukaemia
     Route: 048

REACTIONS (7)
  - Atrial fibrillation [Unknown]
  - Arthralgia [Unknown]
  - Asthenia [Unknown]
  - Haemorrhage [Unknown]
  - Haematotoxicity [Unknown]
  - Infection [Unknown]
  - Colitis [Unknown]
